FAERS Safety Report 6056234-6 (Version None)
Quarter: 2009Q1

REPORT INFORMATION
  Report Type: 
  Country: None (occurrence: None)
  Receive Date: 20090123
  Receipt Date: 20090123
  Transmission Date: 20090719
  Serious: Yes (Death, Hospitalization)
  Sender: FDA-Public Use
  Company Number: None

PATIENT
  Sex: Female
  Weight: 95 kg

DRUGS (3)
  1. CYCLOPHOSPHAMIDE [Suspect]
     Dosage: 3920 MG
  2. TAXOTERE [Suspect]
     Dosage: 480 MG
  3. FEMARA [Suspect]
     Dosage: 2.5 MG

REACTIONS (3)
  - CARDIAC FAILURE [None]
  - PULMONARY HYPERTENSION [None]
  - PULMONARY OEDEMA [None]
